FAERS Safety Report 7088348-6 (Version None)
Quarter: 2010Q4

REPORT INFORMATION
  Report Type: 
  Country: None (occurrence: None)
  Receive Date: 20101108
  Receipt Date: 20101027
  Transmission Date: 20110411
  Serious: Yes (Other)
  Sender: FDA-Public Use
  Company Number: US-ELI_LILLY_AND_COMPANY-US201011000566

PATIENT
  Age: 62 Year
  Sex: Male

DRUGS (1)
  1. EFFIENT [Suspect]
     Dosage: 60 MG, LOADING DOSE
     Route: 065
     Dates: start: 20100913, end: 20100913

REACTIONS (1)
  - THROMBOSIS IN DEVICE [None]
